FAERS Safety Report 11096616 (Version 1)
Quarter: 2015Q2

REPORT INFORMATION
  Report Type: Spontaneous
  Country: FR (occurrence: FR)
  Receive Date: 20150507
  Receipt Date: 20150507
  Transmission Date: 20150821
  Serious: Yes (Hospitalization)
  Sender: FDA-Public Use
  Company Number: FR-009507513-1505FRA002060

PATIENT
  Age: 65 Year
  Sex: Male

DRUGS (10)
  1. JANUMET [Suspect]
     Active Substance: METFORMIN HYDROCHLORIDE\SITAGLIPTIN PHOSPHATE
     Dosage: 1 DF, BID
     Route: 048
     Dates: start: 200910, end: 20150108
  2. ODRIK [Concomitant]
     Active Substance: TRANDOLAPRIL
     Dosage: 2 MG, QD
     Route: 048
     Dates: start: 200910
  3. SINGULAIR [Concomitant]
     Active Substance: MONTELUKAST SODIUM
     Dosage: 10 MG, QD
     Route: 048
     Dates: start: 20141128
  4. VENTOLIN [Concomitant]
     Active Substance: ALBUTEROL SULFATE
     Dosage: 2 DF, TID, FORMULATION REPORTED AS RESPIRATORY
     Dates: start: 201405
  5. CARDENSIEL [Concomitant]
     Active Substance: BISOPROLOL FUMARATE
     Dosage: 5 MG, QD, FORMULATION REPORTED AS SCORED COATED TABLET
     Route: 048
     Dates: start: 200910
  6. STILNOX [Concomitant]
     Active Substance: ZOLPIDEM TARTRATE
     Dosage: 5 MG, QD, FORMULATION REPORTED AS SCORED COATED TABLET
     Route: 048
     Dates: start: 201411
  7. LASILIX [Concomitant]
     Active Substance: FUROSEMIDE
     Dosage: 40 MG, BID
     Route: 048
     Dates: start: 200910
  8. PREVISCAN [Concomitant]
     Active Substance: FLUINDIONE
     Dosage: 20 MG, QD
     Route: 048
     Dates: start: 200910
  9. INEGY [Concomitant]
     Active Substance: EZETIMIBE\SIMVASTATIN
     Dosage: 1 DF, QD
     Route: 048
     Dates: start: 200910
  10. INNOVAIR [Concomitant]
     Active Substance: BECLOMETHASONE DIPROPIONATE\FORMOTEROL
     Dosage: 2 DF, BID, FORMULATION REPORTED AS RESPIRATORY
     Dates: start: 201409

REACTIONS (1)
  - Erysipelas [Recovering/Resolving]

NARRATIVE: CASE EVENT DATE: 20150106
